FAERS Safety Report 17823109 (Version 1)
Quarter: 2020Q2

REPORT INFORMATION
  Report Type: Spontaneous
  Country: US (occurrence: US)
  Receive Date: 20200522
  Receipt Date: 20200522
  Transmission Date: 20200714
  Serious: Yes (Other)
  Sender: FDA-Public Use
  Company Number: None

PATIENT
  Age: 31 Year
  Sex: Female
  Weight: 61.24 kg

DRUGS (4)
  1. HYDROXYZINE [Concomitant]
     Active Substance: HYDROXYZINE HYDROCHLORIDE
  2. NEXPLANON [Suspect]
     Active Substance: ETONOGESTREL
     Indication: CONTRACEPTION
     Dates: start: 20191118, end: 20200519
  3. IB PROFIN [Concomitant]
  4. HAIR SKIN AND NAILS VITAMINS [Concomitant]

REACTIONS (6)
  - Peripheral vascular disorder [None]
  - Fatigue [None]
  - Anaemia [None]
  - Medical device removal [None]
  - Lethargy [None]
  - Vaginal haemorrhage [None]

NARRATIVE: CASE EVENT DATE: 20191118
